FAERS Safety Report 7914034-3 (Version None)
Quarter: 2011Q4

REPORT INFORMATION
  Report Type: 
  Country: None (occurrence: None)
  Receive Date: 20111114
  Receipt Date: 20111114
  Transmission Date: 20120403
  Serious: No
  Sender: FDA-Public Use
  Company Number: None

PATIENT
  Sex: Female
  Weight: 96.2 kg

DRUGS (5)
  1. INTRON A [Suspect]
     Dosage: 197 MU
  2. ZOCOR [Concomitant]
  3. METFORMIN HCL [Concomitant]
  4. ZOFRAN [Concomitant]
  5. DYAZIDE [Concomitant]

REACTIONS (1)
  - HYPERTRIGLYCERIDAEMIA [None]
